FAERS Safety Report 7956450-X (Version None)
Quarter: 2011Q4

REPORT INFORMATION
  Report Type: 
  Country: None (occurrence: None)
  Receive Date: 20111205
  Receipt Date: 20111123
  Transmission Date: 20120403
  Serious: Yes (Hospitalization, Other)
  Sender: FDA-Public Use
  Company Number: US-BAYER-2011-021155

PATIENT
  Age: 46 Year
  Sex: Female
  Weight: 113 kg

DRUGS (2)
  1. DROSPIRENONE AND ETHINYL ESTRADIOL [Suspect]
     Dosage: UNK
     Dates: start: 20080901, end: 20090901
  2. IBUPROFEN (ADVIL) [Concomitant]
     Dosage: UNK UNK, PRN
     Route: 048
     Dates: start: 20090101

REACTIONS (8)
  - PAIN [None]
  - GENERAL PHYSICAL HEALTH DETERIORATION [None]
  - ANXIETY [None]
  - GALLBLADDER DISORDER [None]
  - PULMONARY EMBOLISM [None]
  - PNEUMONIA [None]
  - INJURY [None]
  - EMOTIONAL DISTRESS [None]
